FAERS Safety Report 20496243 (Version 3)
Quarter: 2024Q2

REPORT INFORMATION
  Report Type: Spontaneous
  Country: AU (occurrence: AU)
  Receive Date: 20220221
  Receipt Date: 20240627
  Transmission Date: 20240716
  Serious: Yes (Hospitalization, Other)
  Sender: FDA-Public Use
  Company Number: AU-TASMAN PHARMA, INC.-2022TSM00024

PATIENT
  Sex: Female

DRUGS (46)
  1. CLOZAPINE [Suspect]
     Active Substance: CLOZAPINE
     Indication: Schizophrenia
     Dosage: 275 MG
     Dates: start: 20160829, end: 20160906
  2. CLOZAPINE [Suspect]
     Active Substance: CLOZAPINE
     Dosage: 350 MG
     Dates: start: 20181203, end: 20181209
  3. CLOZAPINE [Suspect]
     Active Substance: CLOZAPINE
     Dosage: 37.5 MG
     Dates: start: 20200610, end: 20200616
  4. CLOZAPINE [Suspect]
     Active Substance: CLOZAPINE
     Dosage: 225 MG
     Dates: start: 20200617, end: 20200701
  5. CLOZAPINE [Suspect]
     Active Substance: CLOZAPINE
     Dosage: 400 MG
     Dates: start: 20200702, end: 20200708
  6. CLOZAPINE [Suspect]
     Active Substance: CLOZAPINE
     Dosage: 450 MG
     Dates: start: 20211115, end: 20211122
  7. CLOZAPINE [Suspect]
     Active Substance: CLOZAPINE
     Dosage: 450 MG
     Dates: start: 20211224, end: 20220201
  8. CLOZAPINE [Suspect]
     Active Substance: CLOZAPINE
     Dosage: 12.5 MG
     Dates: start: 20220209, end: 20220214
  9. CLOZAPINE [Suspect]
     Active Substance: CLOZAPINE
     Dosage: 550 MG
     Dates: start: 20220317
  10. CLOZAPINE [Suspect]
     Active Substance: CLOZAPINE
     Dosage: 400 MG
     Dates: start: 20240606
  11. CLOZAPINE [Suspect]
     Active Substance: CLOZAPINE
     Indication: Schizophrenia
     Dosage: 350 MG
     Dates: start: 20160907, end: 20160908
  12. CLOZAPINE [Suspect]
     Active Substance: CLOZAPINE
     Dosage: 50 MG
     Dates: start: 20160917, end: 20160922
  13. CLOZAPINE [Suspect]
     Active Substance: CLOZAPINE
     Dosage: 275 MG
     Dates: start: 20160930, end: 20161006
  14. CLOZAPINE [Suspect]
     Active Substance: CLOZAPINE
     Dosage: 300 MG
     Dates: start: 20161007, end: 20161017
  15. CLOZAPINE [Suspect]
     Active Substance: CLOZAPINE
     Dosage: 350 MG
     Dates: start: 20161121, end: 20171027
  16. CLOZAPINE [Suspect]
     Active Substance: CLOZAPINE
     Dosage: 350 MG
     Dates: start: 20171206, end: 20180209
  17. CLOZAPINE [Suspect]
     Active Substance: CLOZAPINE
     Dosage: 300 MG
     Dates: start: 20180315, end: 20180408
  18. CLOZAPINE [Suspect]
     Active Substance: CLOZAPINE
     Dosage: 350 MG
     Dates: start: 20180409, end: 20181018
  19. CLOZAPINE [Suspect]
     Active Substance: CLOZAPINE
     Dosage: 12.5 MG
     Dates: start: 20181023, end: 20181028
  20. CLOZAPINE [Suspect]
     Active Substance: CLOZAPINE
     Dosage: 50 MG
     Dates: start: 20181029, end: 20181104
  21. CLOZAPINE [Suspect]
     Active Substance: CLOZAPINE
     Dosage: 350 MG
     Dates: start: 20181210, end: 20190303
  22. CLOZAPINE [Suspect]
     Active Substance: CLOZAPINE
     Dosage: 400 MG
     Dates: start: 20200709, end: 20200714
  23. CLOZAPINE [Suspect]
     Active Substance: CLOZAPINE
     Dosage: 400 MG
     Dates: start: 20201201, end: 20210224
  24. CLOZAPINE [Suspect]
     Active Substance: CLOZAPINE
     Dosage: 400 MG
     Dates: start: 20210324, end: 20210824
  25. CLOZAPINE [Suspect]
     Active Substance: CLOZAPINE
     Dosage: 425 MG
     Dates: start: 20210825, end: 20210926
  26. CLOZAPINE [Suspect]
     Active Substance: CLOZAPINE
     Dosage: 450 MG
     Dates: start: 20211123, end: 20211223
  27. CLOZAPINE [Suspect]
     Active Substance: CLOZAPINE
     Dosage: 100 MG
     Dates: start: 20220215, end: 20220316
  28. CLOZAPINE [Suspect]
     Active Substance: CLOZAPINE
     Indication: Schizophrenia
     Dosage: 300 MG
     Dates: start: 20161018, end: 20161031
  29. CLOZAPINE [Suspect]
     Active Substance: CLOZAPINE
     Dosage: 350 MG
     Dates: start: 20161101, end: 20161120
  30. CLOZAPINE [Suspect]
     Active Substance: CLOZAPINE
     Dosage: 275 MG
     Dates: start: 20171031, end: 20171129
  31. CLOZAPINE [Suspect]
     Active Substance: CLOZAPINE
     Dosage: 100 MG
     Dates: start: 20180210, end: 20180215
  32. CLOZAPINE [Suspect]
     Active Substance: CLOZAPINE
     Dosage: 175 MG
     Dates: start: 20180216, end: 20180225
  33. CLOZAPINE [Suspect]
     Active Substance: CLOZAPINE
     Dosage: 300 MG
     Dates: start: 20180226, end: 20180314
  34. CLOZAPINE [Suspect]
     Active Substance: CLOZAPINE
     Dosage: 100 MG
     Dates: start: 20181105, end: 20181113
  35. CLOZAPINE [Suspect]
     Active Substance: CLOZAPINE
     Dosage: 300 MG
     Dates: start: 20181114, end: 20181118
  36. CLOZAPINE [Suspect]
     Active Substance: CLOZAPINE
     Dosage: 325 MG
     Dates: start: 20181119, end: 20181125
  37. CLOZAPINE [Suspect]
     Active Substance: CLOZAPINE
     Dosage: 350 MG
     Dates: start: 20181126, end: 20181202
  38. CLOZAPINE [Suspect]
     Active Substance: CLOZAPINE
     Dosage: 400 MG
     Dates: start: 20200715, end: 20201130
  39. CLOZAPINE [Suspect]
     Active Substance: CLOZAPINE
     Dosage: 400 MG
     Dates: start: 20210225, end: 20210323
  40. CLOZAPINE [Suspect]
     Active Substance: CLOZAPINE
     Dosage: 425 MG
     Dates: start: 20210927, end: 20211031
  41. CLOZAPINE [Suspect]
     Active Substance: CLOZAPINE
     Dosage: 400 MG
     Dates: start: 20211101, end: 20211114
  42. CLOZAPINE [Suspect]
     Active Substance: CLOZAPINE
     Indication: Schizophrenia
     Dosage: 600 MG
     Dates: start: 20220519, end: 20221103
  43. CLOZAPINE [Suspect]
     Active Substance: CLOZAPINE
     Dosage: 550 MG
     Dates: start: 20221104, end: 20221116
  44. CLOZAPINE [Suspect]
     Active Substance: CLOZAPINE
     Dosage: 75 TO 600 MG
     Dates: start: 20221123, end: 20230817
  45. CLOZAPINE [Suspect]
     Active Substance: CLOZAPINE
     Dosage: 25 TO 475 MG
     Dates: start: 20230823, end: 20240430
  46. CLOZAPINE [Suspect]
     Active Substance: CLOZAPINE
     Dosage: 50 TO 300 MG
     Dates: start: 20240508, end: 20240605

REACTIONS (17)
  - Hospitalisation [Unknown]
  - Product administration error [Recovered/Resolved]
  - Overdose [Recovered/Resolved]
  - Troponin increased [Unknown]
  - Oropharyngeal pain [Unknown]
  - Pain [Unknown]
  - Viral infection [Unknown]
  - Treatment noncompliance [Recovered/Resolved]
  - QRS axis abnormal [Unknown]
  - Constipation [Unknown]
  - Headache [Unknown]
  - Sinus tachycardia [Unknown]
  - Influenza like illness [Unknown]
  - Pyrexia [Unknown]
  - Abdominal pain upper [Unknown]
  - C-reactive protein increased [Unknown]
  - Product dose omission issue [Recovered/Resolved]

NARRATIVE: CASE EVENT DATE: 20160101
